FAERS Safety Report 5737381-2 (Version None)
Quarter: 2008Q2

REPORT INFORMATION
  Report Type: 
  Country: None (occurrence: None)
  Receive Date: 20080514
  Receipt Date: 20080123
  Transmission Date: 20081010
  Serious: No
  Sender: FDA-Public Use
  Company Number: US-BRISTOL-MYERS SQUIBB COMPANY-14051908

PATIENT
  Sex: Female

DRUGS (2)
  1. IXEMPRA FOR INJ [Suspect]
  2. DECADRON [Concomitant]

REACTIONS (4)
  - ARTHRALGIA [None]
  - HEADACHE [None]
  - MUSCULOSKELETAL PAIN [None]
  - MYALGIA [None]
